FAERS Safety Report 16273750 (Version 1)
Quarter: 2019Q2

REPORT INFORMATION
  Report Type: Spontaneous
  Country: FR (occurrence: FR)
  Receive Date: 20190506
  Receipt Date: 20190506
  Transmission Date: 20190711
  Serious: Yes (Hospitalization)
  Sender: FDA-Public Use
  Company Number: FR-BEH-2019101817

PATIENT
  Age: 37 Year
  Sex: Male
  Weight: 64 kg

DRUGS (6)
  1. HIZENTRA [Suspect]
     Active Substance: HUMAN IMMUNOGLOBULIN G
     Indication: IMMUNODEFICIENCY
     Dosage: 4 G, QW
     Route: 058
     Dates: start: 2018
  2. VALACICLOVIR [Suspect]
     Active Substance: VALACYCLOVIR HYDROCHLORIDE
     Indication: IMMUNODEFICIENCY
     Dosage: 500 MG, QD
     Route: 048
     Dates: start: 2018
  3. BACTRIM [Suspect]
     Active Substance: SULFAMETHOXAZOLE\TRIMETHOPRIM
     Indication: INFECTION PROPHYLAXIS
     Dosage: 3 DF (400/80MG 3 1 WEEK), QW
     Route: 048
     Dates: start: 2018
  4. GLIVEC [Suspect]
     Active Substance: IMATINIB MESYLATE
     Indication: ACUTE LYMPHOCYTIC LEUKAEMIA
     Dosage: 600 MG, QD
     Route: 048
     Dates: start: 20180613
  5. ORACILLINE                         /00001805/ [Suspect]
     Active Substance: PENICILLIN V BENZATHINE
     Indication: INFECTION PROPHYLAXIS
     Dosage: 2 MILLION IU, QD
     Route: 048
     Dates: start: 2018
  6. LEDERFOLINE [Suspect]
     Active Substance: LEUCOVORIN CALCIUM
     Indication: VITAMIN SUPPLEMENTATION
     Route: 048
     Dates: start: 2018

REACTIONS (1)
  - Pericarditis [Recovered/Resolved]

NARRATIVE: CASE EVENT DATE: 20190227
